FAERS Safety Report 15447979 (Version 1)
Quarter: 2018Q4

REPORT INFORMATION
  Report Type: Spontaneous
  Country: US (occurrence: US)
  Receive Date: 20180928
  Receipt Date: 20180928
  Transmission Date: 20190204
  Serious: No
  Sender: FDA-Public Use
  Company Number: US-TEVA-2018-US-958078

PATIENT
  Age: 79 Year
  Sex: Female

DRUGS (4)
  1. TEVA TORASEMIDE [Suspect]
     Active Substance: TORSEMIDE
     Route: 065
  2. TEVA TORASEMIDE [Suspect]
     Active Substance: TORSEMIDE
     Dosage: 10 MILLIGRAM DAILY;
     Route: 065
  3. TEVA TORASEMIDE [Suspect]
     Active Substance: TORSEMIDE
     Dosage: 20 MILLIGRAM DAILY;
     Route: 065
     Dates: start: 201805
  4. TRAMADOL. [Concomitant]
     Active Substance: TRAMADOL
     Dosage: 120 MILLIGRAM DAILY;

REACTIONS (1)
  - Drug ineffective [Unknown]
